FAERS Safety Report 5815411-7 (Version None)
Quarter: 2008Q3

REPORT INFORMATION
  Report Type: 
  Country: None (occurrence: None)
  Receive Date: 20080718
  Receipt Date: 20080708
  Transmission Date: 20090109
  Serious: Yes (Other)
  Sender: FDA-Public Use
  Company Number: US-PFIZER INC-2008044626

PATIENT
  Sex: Female
  Weight: 122.9 kg

DRUGS (8)
  1. LYRICA [Suspect]
     Indication: PAIN
  2. LYRICA [Suspect]
     Indication: FIBROMYALGIA
  3. ALL OTHER THERAPEUTIC PRODUCTS [Suspect]
     Route: 042
  4. ZOLOFT [Concomitant]
  5. BENICAR HCT [Concomitant]
     Dosage: TEXT:40/12.5 MGS ONCE DAILY
  6. ALBUTEROL [Concomitant]
     Dosage: TEXT:2 PUFFS EVERY 4 HOURS PRN
  7. IBUPROFEN [Concomitant]
  8. MULTI-VITAMINS [Concomitant]

REACTIONS (7)
  - ANAESTHETIC COMPLICATION [None]
  - BLOOD PRESSURE DECREASED [None]
  - CARBON DIOXIDE INCREASED [None]
  - NOCTURIA [None]
  - PROCEDURAL HYPOTENSION [None]
  - ROTATOR CUFF REPAIR [None]
  - URINARY TRACT INFECTION [None]
